FAERS Safety Report 11364062 (Version 1)
Quarter: 2015Q3

REPORT INFORMATION
  Report Type: Report from Study
  Country: GB (occurrence: GB)
  Receive Date: 20150811
  Receipt Date: 20150811
  Transmission Date: 20151125
  Serious: Yes (Life-Threatening, Hospitalization)
  Sender: FDA-Public Use
  Company Number: GB-GLAXOSMITHKLINE-B0959592A

PATIENT
  Age: 65 Year
  Sex: Male
  Weight: 96 kg

DRUGS (17)
  1. TILDIEM LA ^200^ [Concomitant]
     Indication: HYPERTENSION
     Dosage: 1 CAP, OD
     Route: 048
     Dates: start: 1999
  2. GTN [Concomitant]
     Active Substance: NITROGLYCERIN
     Indication: MYOCARDIAL ISCHAEMIA
     Dosage: 2 GTT, PRN
     Route: 060
     Dates: start: 2001
  3. CLOPIDOGREL [Concomitant]
     Active Substance: CLOPIDOGREL BISULFATE
     Indication: MYOCARDIAL ISCHAEMIA
     Dosage: 75 MG, OD
     Route: 048
     Dates: start: 2012
  4. CLOPIDOGREL [Concomitant]
     Active Substance: CLOPIDOGREL BISULFATE
     Indication: MYOCARDIAL ISCHAEMIA
  5. METFORMIN [Concomitant]
     Active Substance: METFORMIN HYDROCHLORIDE
     Indication: TYPE 2 DIABETES MELLITUS
     Dosage: 500 MG, OD
     Route: 048
     Dates: start: 20121207
  6. CO-CODAMOL 30/500 [Concomitant]
     Indication: KNEE ARTHROPLASTY
     Dosage: 2 TAB, PRN
     Route: 048
     Dates: start: 20070721
  7. GTN [Concomitant]
     Active Substance: NITROGLYCERIN
     Indication: MYOCARDIAL ISCHAEMIA
  8. METFORMIN [Concomitant]
     Active Substance: METFORMIN HYDROCHLORIDE
     Indication: TYPE 2 DIABETES MELLITUS
  9. FLUTICASONE FUROATE + VILANTEROL TRIFENATATE [Suspect]
     Active Substance: FLUTICASONE FUROATE\VILANTEROL TRIFENATATE
     Indication: CHRONIC OBSTRUCTIVE PULMONARY DISEASE
     Dosage: UNK
     Route: 055
     Dates: start: 20131213, end: 20131231
  10. CLENIL MODULITE ^100^ [Concomitant]
     Indication: CHRONIC OBSTRUCTIVE PULMONARY DISEASE
     Dosage: 2 INH, BID
     Route: 048
     Dates: start: 2003, end: 20131203
  11. RAMIPRIL. [Concomitant]
     Active Substance: RAMIPRIL
     Indication: HYPERTENSION
     Dosage: 2.5 MG, BID
     Route: 048
     Dates: start: 2012
  12. ROSUVASTATIN [Concomitant]
     Active Substance: ROSUVASTATIN
     Indication: HYPERCHOLESTEROLAEMIA
     Dosage: 10 MG, OD
     Route: 048
     Dates: start: 2003
  13. SERETIDE [Concomitant]
     Active Substance: FLUTICASONE FUROATE\SALMETEROL XINAFOATE
     Indication: CHRONIC OBSTRUCTIVE PULMONARY DISEASE
     Dosage: 1 INH, BID
     Route: 055
     Dates: start: 20090817, end: 20131203
  14. NICORANDIL [Concomitant]
     Active Substance: NICORANDIL
     Indication: MYOCARDIAL ISCHAEMIA
  15. ROSUVASTATIN [Concomitant]
     Active Substance: ROSUVASTATIN
     Indication: HYPERCHOLESTEROLAEMIA
  16. VENTOLIN 100 [Concomitant]
     Indication: CHRONIC OBSTRUCTIVE PULMONARY DISEASE
     Dosage: 2 INH, PRN
     Route: 048
     Dates: start: 1999
  17. NICORANDIL [Concomitant]
     Active Substance: NICORANDIL
     Indication: MYOCARDIAL ISCHAEMIA
     Dosage: 10 MG, BID
     Route: 048
     Dates: start: 2007

REACTIONS (1)
  - Chronic obstructive pulmonary disease [Recovered/Resolved]

NARRATIVE: CASE EVENT DATE: 20131231
